FAERS Safety Report 20979706 (Version 1)
Quarter: 2022Q2

REPORT INFORMATION
  Report Type: Spontaneous
  Country: US (occurrence: US)
  Receive Date: 20220620
  Receipt Date: 20220620
  Transmission Date: 20220720
  Serious: No
  Sender: FDA-Public Use
  Company Number: US-CELGENE-USA-20220200238

PATIENT
  Age: 62 Year
  Sex: Female

DRUGS (2)
  1. LENALIDOMIDE [Suspect]
     Active Substance: LENALIDOMIDE
     Indication: Plasma cell myeloma
     Dosage: 25 MILLIGRAM
     Route: 048
     Dates: start: 202112
  2. LENALIDOMIDE [Suspect]
     Active Substance: LENALIDOMIDE
     Dosage: FREQUENCY: DAILY FOR 14 DAYS ON AND 7DAYS OFF
     Route: 048
     Dates: start: 202112

REACTIONS (4)
  - Rash [Unknown]
  - Vomiting [Unknown]
  - Diarrhoea [Unknown]
  - Insomnia [Unknown]

NARRATIVE: CASE EVENT DATE: 20220418
